FAERS Safety Report 9952946 (Version 2)
Quarter: 2014Q1

REPORT INFORMATION
  Report Type: Spontaneous
  Country: FI (occurrence: FI)
  Receive Date: 20140304
  Receipt Date: 20140311
  Transmission Date: 20141002
  Serious: Yes (Hospitalization)
  Sender: FDA-Public Use
  Company Number: FI-JNJFOC-20140217128

PATIENT
  Age: 32 Year
  Sex: Female

DRUGS (17)
  1. XEPLION [Suspect]
     Indication: SCHIZOPHRENIA
     Route: 030
     Dates: start: 20140207, end: 20140207
  2. XEPLION [Suspect]
     Indication: SCHIZOPHRENIA
     Route: 030
     Dates: start: 20140110, end: 20140110
  3. XEPLION [Suspect]
     Indication: SCHIZOPHRENIA
     Route: 030
     Dates: start: 20131213, end: 20131213
  4. SUBOXONE [Concomitant]
     Indication: DRUG DEPENDENCE
     Route: 065
  5. KETIPINOR [Concomitant]
     Dosage: 1X2
     Route: 065
  6. SEROQUEL [Concomitant]
     Indication: PRODUCT USED FOR UNKNOWN INDICATION
     Route: 065
  7. SEROQUEL [Concomitant]
     Indication: PRODUCT USED FOR UNKNOWN INDICATION
     Route: 065
  8. GABAPENTIN [Concomitant]
     Dosage: 1 X 2
     Route: 065
  9. JANUVIA [Concomitant]
     Dosage: 1 X 1
     Route: 065
  10. DIFORMIN RETARD [Concomitant]
     Dosage: 1+2
     Route: 065
  11. MELATONIN [Concomitant]
     Dosage: 2 X 1
     Route: 065
  12. TEMAZEPAM [Concomitant]
     Dosage: 2 X 1
     Route: 065
  13. OPAMOX [Concomitant]
     Dosage: 1X3
     Route: 065
  14. PROPRANOLOL [Concomitant]
     Dosage: 1X2
     Route: 065
  15. SOMAC [Concomitant]
     Dosage: 1X 1
     Route: 065
  16. HISTEC [Concomitant]
     Route: 065
  17. PANADOL [Concomitant]
     Indication: PRODUCT USED FOR UNKNOWN INDICATION
     Route: 065

REACTIONS (1)
  - Pancreatitis [Unknown]
